FAERS Safety Report 15723511 (Version 2)
Quarter: 2018Q4

REPORT INFORMATION
  Report Type: Spontaneous
  Country: BE (occurrence: BE)
  Receive Date: 20181214
  Receipt Date: 20181224
  Transmission Date: 20190205
  Serious: Yes (Hospitalization, Disabling, Other)
  Sender: FDA-Public Use
  Company Number: BE-DSJP-DSE-2018-151288

PATIENT

DRUGS (10)
  1. BELSAR [Suspect]
     Active Substance: OLMESARTAN MEDOXOMIL
     Indication: HYPERTENSION
     Dosage: 20 MG, QD
     Route: 048
     Dates: start: 20180410, end: 20180415
  2. BELSAR [Suspect]
     Active Substance: OLMESARTAN MEDOXOMIL
     Dosage: 40 MG, QD
     Route: 048
     Dates: start: 20180529, end: 20180828
  3. L-THYROXINE                        /00068001/ [Concomitant]
     Active Substance: LEVOTHYROXINE
     Indication: PRODUCT USED FOR UNKNOWN INDICATION
     Dosage: 87.5 ?G, QD
     Dates: start: 2000
  4. AMLOR [Concomitant]
     Active Substance: AMLODIPINE BESYLATE
     Indication: PRODUCT USED FOR UNKNOWN INDICATION
     Dosage: 10 MG, QD
  5. EMCONCOR [Suspect]
     Active Substance: BISOPROLOL FUMARATE
     Indication: PRODUCT USED FOR UNKNOWN INDICATION
     Dosage: 5 MG, QD
     Dates: start: 2013, end: 20180828
  6. ASAFLOW [Concomitant]
     Active Substance: ASPIRIN
     Indication: PROPHYLAXIS
     Dosage: 80 MG, QD
     Dates: start: 2013
  7. ARTERIM [Concomitant]
     Indication: PRODUCT USED FOR UNKNOWN INDICATION
  8. NEXIAM                             /01479302/ [Concomitant]
     Active Substance: ESOMEPRAZOLE MAGNESIUM
     Indication: PRODUCT USED FOR UNKNOWN INDICATION
     Dosage: 40 MG, QD
  9. BELSAR [Suspect]
     Active Substance: OLMESARTAN MEDOXOMIL
     Dosage: 40 MG, QD
     Route: 048
     Dates: start: 20180416, end: 20180423
  10. OLMESARTAN MEDOXOMIL_AMLODIPINE_HYDROCHLOROTHIAZIDE [Suspect]
     Active Substance: AMLODIPINE\HYDROCHLOROTHIAZIDE\OLMESARTAN
     Indication: HYPERTENSION
     Dosage: 1 DF, QD
     Dates: start: 20180424, end: 20180528

REACTIONS (13)
  - Dyspnoea [Unknown]
  - Blood urea increased [Unknown]
  - Renal impairment [Recovered/Resolved]
  - Fatigue [Recovering/Resolving]
  - Cardiac pacemaker insertion [Recovered/Resolved]
  - Anaemia [Unknown]
  - Acute kidney injury [Recovered/Resolved]
  - Bradycardia [Unknown]
  - Drug level increased [Recovered/Resolved]
  - Ischaemic hepatitis [Recovering/Resolving]
  - Hypovolaemia [Recovering/Resolving]
  - Oedema peripheral [Unknown]
  - General physical health deterioration [Unknown]

NARRATIVE: CASE EVENT DATE: 2018
